FAERS Safety Report 23971629 (Version 1)
Quarter: 2024Q2

REPORT INFORMATION
  Report Type: Spontaneous
  Country: PR (occurrence: PR)
  Receive Date: 20240613
  Receipt Date: 20240613
  Transmission Date: 20240715
  Serious: Yes (Death, Other)
  Sender: FDA-Public Use
  Company Number: PR-BRISTOL-MYERS SQUIBB COMPANY-2024-094220

PATIENT
  Age: 69 Year
  Sex: Female
  Weight: 82.1 kg

DRUGS (1)
  1. REVLIMID [Suspect]
     Active Substance: LENALIDOMIDE
     Indication: Plasma cell myeloma in remission
     Dosage: 21 DAYS AND 7 DAYS OFF
     Route: 048
     Dates: start: 20230810

REACTIONS (1)
  - Death [Fatal]

NARRATIVE: CASE EVENT DATE: 20240604
